FAERS Safety Report 9892870 (Version 4)
Quarter: 2015Q1

REPORT INFORMATION
  Report Type: Spontaneous
  Country: CH (occurrence: CH)
  Receive Date: 20140213
  Receipt Date: 20150122
  Transmission Date: 20150721
  Serious: Yes (Other)
  Sender: FDA-Public Use
  Company Number: CH-ROCHE-1343396

PATIENT
  Sex: Female

DRUGS (1)
  1. LUCENTIS [Suspect]
     Active Substance: RANIBIZUMAB
     Indication: DIABETIC RETINAL OEDEMA
     Dosage: ON 20 DEC 2013, SHE RECEIVED LAST INJECTION OF RANIBIZUMAB BEFORE EVENT ONSET.
     Route: 050

REACTIONS (1)
  - Endophthalmitis [Unknown]
